FAERS Safety Report 13102237 (Version 2)
Quarter: 2017Q1

REPORT INFORMATION
  Report Type: Report from Study
  Country: US (occurrence: US)
  Receive Date: 20170110
  Receipt Date: 20170127
  Transmission Date: 20170428
  Serious: Yes (Death)
  Sender: FDA-Public Use
  Company Number: US-PFIZER INC-2017008948

PATIENT

DRUGS (6)
  1. CETUXIMAB. [Suspect]
     Active Substance: CETUXIMAB
     Indication: NON-SMALL CELL LUNG CANCER STAGE III
     Dosage: 400 MG/M2, (LOADING DOSE, WEEK 1 DAY 1 OVER 2 HOURS)
     Route: 042
  2. PACLITAXEL. [Suspect]
     Active Substance: PACLITAXEL
     Indication: NON-SMALL CELL LUNG CANCER STAGE III
     Dosage: 45 MG/M2, WEEKLY (OVER 1 HOUR) (DURING WEEKS 2 THROUGH 8)
     Route: 042
  3. CARBOPLATIN. [Suspect]
     Active Substance: CARBOPLATIN
     Dosage: AUC 6 OVER 30 MINUTES EVERY 3 WEEKS FOR TWO CYCLES (WEEKS 12 THROUGH 17)
     Route: 042
  4. CARBOPLATIN. [Suspect]
     Active Substance: CARBOPLATIN
     Indication: NON-SMALL CELL LUNG CANCER STAGE III
     Dosage: AUC 2 FOR SEVEN DOSES, (DURING WEEKS 2 THROUGH 8)
     Route: 042
  5. PACLITAXEL. [Suspect]
     Active Substance: PACLITAXEL
     Dosage: 200 MG/M2, OVER 3 HOURS, EVERY 3 WEEKS FOR TWO CYCLES (WEEKS 12 THROUGH 17)
     Route: 042
  6. CETUXIMAB. [Suspect]
     Active Substance: CETUXIMAB
     Dosage: 250 MG/M2, WEEKLY (OVER 60 MINUTES) (17 WEEKS TOTAL)
     Route: 042

REACTIONS (1)
  - Sepsis [Fatal]
